FAERS Safety Report 6262778-4 (Version None)
Quarter: 2009Q3

REPORT INFORMATION
  Report Type: 
  Country: None (occurrence: None)
  Receive Date: 20090709
  Receipt Date: 20090706
  Transmission Date: 20100115
  Serious: Yes (Other)
  Sender: FDA-Public Use
  Company Number: US-BAXTER-2009BH011149

PATIENT
  Sex: Female

DRUGS (1)
  1. HEPARIN SODIUM INJECTION [Suspect]
     Indication: DRUG USE FOR UNKNOWN INDICATION
     Route: 065
     Dates: start: 20070701

REACTIONS (7)
  - ABDOMINAL PAIN [None]
  - HEADACHE [None]
  - HYPERSENSITIVITY [None]
  - INJECTION SITE SWELLING [None]
  - NAUSEA [None]
  - PRURITUS [None]
  - RESPIRATORY DISTRESS [None]
